FAERS Safety Report 6649714-3 (Version None)
Quarter: 2010Q1

REPORT INFORMATION
  Report Type: 
  Country: None (occurrence: None)
  Receive Date: 20100324
  Receipt Date: 20100324
  Transmission Date: 20100710
  Serious: Yes (Hospitalization)
  Sender: FDA-Public Use
  Company Number: None

PATIENT
  Age: 55 Year
  Sex: Male
  Weight: 68.0396 kg

DRUGS (1)
  1. SUDAFED 24 HOUR [Suspect]
     Indication: SEASONAL ALLERGY
     Dosage: 1 TABLET PO
     Route: 048
     Dates: start: 20100321, end: 20100321

REACTIONS (2)
  - ANURIA [None]
  - DYSURIA [None]
